FAERS Safety Report 11174893 (Version 1)
Quarter: 2015Q2

REPORT INFORMATION
  Report Type: Spontaneous
  Country: US (occurrence: None)
  Receive Date: 20150608
  Receipt Date: 20150608
  Transmission Date: 20150821
  Serious: Yes (Other)
  Sender: FDA-Public Use
  Company Number: None

PATIENT
  Age: 37 Year
  Sex: Female

DRUGS (3)
  1. PRISTIQ EXTENDED RELEASE [Suspect]
     Active Substance: DESVENLAFAXINE SUCCINATE
     Indication: ANXIETY
     Dosage: 1 50 MG PILL/DAY ONCE DAILY TAKEN BY MOUTH
     Route: 048
  2. PRISTIQ EXTENDED RELEASE [Suspect]
     Active Substance: DESVENLAFAXINE SUCCINATE
     Indication: MIGRAINE
     Dosage: 1 50 MG PILL/DAY ONCE DAILY TAKEN BY MOUTH
     Route: 048
  3. PRISTIQ EXTENDED RELEASE [Suspect]
     Active Substance: DESVENLAFAXINE SUCCINATE
     Dosage: 1 50 MG PILL/DAY ONCE DAILY TAKEN BY MOUTH
     Route: 048

REACTIONS (13)
  - Anger [None]
  - Blood pressure increased [None]
  - Hyperhidrosis [None]
  - Abnormal dreams [None]
  - Weight increased [None]
  - Blood glucose increased [None]
  - Fall [None]
  - Withdrawal syndrome [None]
  - Flat affect [None]
  - Concussion [None]
  - Joint injury [None]
  - Feeling abnormal [None]
  - Balance disorder [None]
